FAERS Safety Report 18968853 (Version 1)
Quarter: 2021Q1

REPORT INFORMATION
  Report Type: Spontaneous
  Country: US (occurrence: US)
  Receive Date: 20210304
  Receipt Date: 20210304
  Transmission Date: 20210420
  Serious: Yes (Death)
  Sender: FDA-Public Use
  Company Number: None

PATIENT
  Age: 69 Year
  Sex: Male

DRUGS (1)
  1. TISAGENLECLEUCEL. [Suspect]
     Active Substance: TISAGENLECLEUCEL
     Indication: DIFFUSE LARGE B-CELL LYMPHOMA
     Dosage: ?          OTHER FREQUENCY:ONCE;?
     Route: 041
     Dates: start: 20180710, end: 20180718

REACTIONS (5)
  - Pancytopenia [None]
  - Metastases to liver [None]
  - Lymphocyte adoptive therapy [None]
  - Disease progression [None]
  - Positron emission tomogram abnormal [None]

NARRATIVE: CASE EVENT DATE: 20180819
